FAERS Safety Report 9938623 (Version 1)
Quarter: 2014Q1

REPORT INFORMATION
  Report Type: Spontaneous
  Country: BE (occurrence: BE)
  Receive Date: 20140303
  Receipt Date: 20140303
  Transmission Date: 20141002
  Serious: Yes (Life-Threatening, Hospitalization)
  Sender: FDA-Public Use
  Company Number: BE-JNJFOC-20140216865

PATIENT
  Age: 82 Year
  Sex: Female
  Weight: 72.11 kg

DRUGS (2)
  1. XARELTO [Suspect]
     Indication: CEREBROVASCULAR ACCIDENT PROPHYLAXIS
     Route: 048
     Dates: start: 20130130, end: 20131231
  2. XARELTO [Suspect]
     Indication: ATRIAL FIBRILLATION
     Route: 048
     Dates: start: 20130130, end: 20131231

REACTIONS (10)
  - Cerebral haemorrhage [Unknown]
  - Abdominal pain [Unknown]
  - Confusional state [Unknown]
  - Dyspnoea [Unknown]
  - Headache [Unknown]
  - Confusional state [Unknown]
  - Diarrhoea [Unknown]
  - Speech disorder [Unknown]
  - Malaise [Unknown]
  - Chills [Unknown]
